FAERS Safety Report 9814845 (Version 3)
Quarter: 2014Q1

REPORT INFORMATION
  Report Type: Spontaneous
  Country: US (occurrence: US)
  Receive Date: 20140113
  Receipt Date: 20140317
  Transmission Date: 20141002
  Serious: Yes (Other)
  Sender: FDA-Public Use
  Company Number: US-GLAXOSMITHKLINE-A1056261A

PATIENT
  Age: 64 Year
  Sex: Male

DRUGS (2)
  1. ADVAIR HFA [Suspect]
     Indication: EMPHYSEMA
     Route: 055
     Dates: start: 20120518
  2. VENTOLIN [Suspect]
     Indication: PRODUCT USED FOR UNKNOWN INDICATION
     Route: 055
     Dates: start: 20120518

REACTIONS (5)
  - Chemotherapy [Unknown]
  - Dyspnoea [Unknown]
  - Ill-defined disorder [Unknown]
  - Inhalation therapy [Unknown]
  - Oropharyngeal pain [Unknown]
